FAERS Safety Report 16534498 (Version 5)
Quarter: 2025Q3

REPORT INFORMATION
  Report Type: Spontaneous
  Country: EU (occurrence: EU)
  Receive Date: 20190705
  Receipt Date: 20250723
  Transmission Date: 20251020
  Serious: Yes (Other)
  Sender: BAYER HEALTHCARE PHARMACEUTICALS INC.
  Company Number: None

PATIENT
  Age: 29 Year
  Sex: Female
  Weight: 48 kg

DRUGS (5)
  1. GADOBUTROL [Suspect]
     Active Substance: GADOBUTROL
     Indication: Magnetic resonance imaging
     Route: 042
     Dates: start: 20180823, end: 20180823
  2. GADOBUTROL [Suspect]
     Active Substance: GADOBUTROL
     Indication: Magnetic resonance imaging abdominal
     Route: 042
     Dates: start: 20181017, end: 20181017
  3. GADOBUTROL [Suspect]
     Active Substance: GADOBUTROL
     Indication: Appendicitis
  4. GADOBUTROL [Suspect]
     Active Substance: GADOBUTROL
     Indication: Intra-abdominal fluid collection
  5. MULTIHANCE [Suspect]
     Active Substance: GADOBENATE DIMEGLUMINE
     Indication: Magnetic resonance imaging head
     Dates: start: 20181122

REACTIONS (8)
  - Gadolinium deposition disease [Unknown]
  - Contrast media toxicity [Unknown]
  - Heavy metal abnormal [Recovered/Resolved]
  - Contrast media deposition [Unknown]
  - Arthralgia [Recovered/Resolved]
  - Pain [Recovered/Resolved]
  - Paraesthesia [Recovered/Resolved]
  - Burning sensation [Recovered/Resolved]

NARRATIVE: CASE EVENT DATE: 20180101
